FAERS Safety Report 15048896 (Version 1)
Quarter: 2018Q2

REPORT INFORMATION
  Report Type: Spontaneous
  Country: DE (occurrence: DE)
  Receive Date: 20180622
  Receipt Date: 20180622
  Transmission Date: 20180711
  Serious: Yes (Hospitalization)
  Sender: FDA-Public Use
  Company Number: DE-TEVA-2018-DE-910947

PATIENT
  Age: 64 Year
  Sex: Male
  Weight: 60 kg

DRUGS (10)
  1. DANTROLEN [Suspect]
     Active Substance: DANTROLENE SODIUM
     Dosage: 25 MG, 1-0-1,
     Route: 048
  2. PANTOPRAZOL [Concomitant]
     Active Substance: PANTOPRAZOLE SODIUM
     Dosage: 40 MG, 1-0-0,
     Route: 048
  3. DULOXETIN [Suspect]
     Active Substance: DULOXETINE
     Dosage: 30 MG, 1-0-0,
     Route: 048
  4. LEVOTHYROXINE. [Concomitant]
     Active Substance: LEVOTHYROXINE
     Dosage: 75 ?G, 1-0-0,
     Route: 048
  5. MACROGOL [Concomitant]
     Active Substance: POLYETHYLENE GLYCOLS
     Dosage: 1-0-0
     Route: 048
  6. LEVOFLOXACIN. [Suspect]
     Active Substance: LEVOFLOXACIN
     Dosage: 500 MG, 1-0-0,
     Route: 048
  7. BACLOFEN. [Suspect]
     Active Substance: BACLOFEN
     Dosage: 25 MG, 1-1-1,
     Route: 048
  8. OXYCODONE [Suspect]
     Active Substance: OXYCODONE
     Dosage: 5|2.5 MG, 1-0-1,
     Route: 048
  9. SERTRALINE [Suspect]
     Active Substance: SERTRALINE HYDROCHLORIDE
     Dosage: 50 MG, 1/2-0-0,
     Route: 048
  10. ONDANSETRON [Concomitant]
     Active Substance: ONDANSETRON
     Dosage: 5 MG, 1-0-0
     Route: 048

REACTIONS (5)
  - Drug prescribing error [Unknown]
  - Dizziness [Unknown]
  - Nausea [Unknown]
  - Decreased appetite [Unknown]
  - Weight decreased [Unknown]
